FAERS Safety Report 5248899-3 (Version None)
Quarter: 2007Q1

REPORT INFORMATION
  Report Type: 
  Country: None (occurrence: None)
  Receive Date: 20070228
  Receipt Date: 20070222
  Transmission Date: 20070707
  Serious: Yes (Other)
  Sender: FDA-Public Use
  Company Number: US-JNJFOC-20070205373

PATIENT
  Sex: Female
  Weight: 77.11 kg

DRUGS (10)
  1. INFLIXIMAB [Suspect]
     Indication: RHEUMATOID ARTHRITIS
     Route: 042
  2. NEXIUM [Concomitant]
  3. METHOTREXATE [Concomitant]
  4. K-DUR 10 [Concomitant]
  5. FOLIC ACID [Concomitant]
  6. ATENOLOL [Concomitant]
  7. EVISTA [Concomitant]
  8. BUMETANIDE [Concomitant]
  9. TRAZODONE HCL [Concomitant]
  10. TYLENOL [Concomitant]

REACTIONS (1)
  - SKIN CANCER [None]
